FAERS Safety Report 5649774-2 (Version None)
Quarter: 2008Q1

REPORT INFORMATION
  Report Type: 
  Country: None (occurrence: None)
  Receive Date: 20080131
  Receipt Date: 20071112
  Transmission Date: 20080703
  Serious: No
  Sender: FDA-Public Use
  Company Number: US200711002994

PATIENT
  Age: 76 Year
  Sex: Female

DRUGS (3)
  1. BYETTA [Suspect]
     Indication: TYPE 2 DIABETES MELLITUS
     Dosage: 5 UG, 2/D, SUBCUTANEOUS ; 10 UG, 2/D, SUBCUTANEOUS
     Route: 058
     Dates: start: 20051101, end: 20051201
  2. BYETTA [Suspect]
     Indication: TYPE 2 DIABETES MELLITUS
     Dosage: 5 UG, 2/D, SUBCUTANEOUS ; 10 UG, 2/D, SUBCUTANEOUS
     Route: 058
     Dates: start: 20051201
  3. STARLIX [Concomitant]

REACTIONS (10)
  - CATARACT [None]
  - COUGH [None]
  - EYE PAIN [None]
  - EYE SWELLING [None]
  - HEADACHE [None]
  - INFECTION [None]
  - MALAISE [None]
  - SNEEZING [None]
  - URTICARIA [None]
  - VISION BLURRED [None]
